FAERS Safety Report 20810071 (Version 1)
Quarter: 2022Q2

REPORT INFORMATION
  Report Type: Spontaneous
  Country: US (occurrence: US)
  Receive Date: 20220510
  Receipt Date: 20220510
  Transmission Date: 20220721
  Serious: No
  Sender: FDA-Public Use
  Company Number: US-OYSTER POINT PHARMA, INC.-2022OYS00187

PATIENT
  Sex: Female
  Weight: 50.794 kg

DRUGS (6)
  1. TYRVAYA [Suspect]
     Active Substance: VARENICLINE TARTRATE
     Indication: Dry eye
     Dosage: 1 SPRAY IN EACH NOSTRIL, 2X/DAY
     Route: 045
     Dates: start: 202201, end: 202202
  2. TYRVAYA [Suspect]
     Active Substance: VARENICLINE TARTRATE
     Dosage: 1 SPRAY IN EACH NOSTRIL, 2X/DAY
     Route: 045
     Dates: start: 202202
  3. VITAMINS [Concomitant]
     Active Substance: VITAMINS
  4. VITAMIN E [Concomitant]
     Active Substance: .ALPHA.-TOCOPHEROL
  5. SYSTANE EYEDROPS [Concomitant]
     Active Substance: POLYETHYLENE GLYCOL 400\PROPYLENE GLYCOL
  6. PROLIA [Concomitant]
     Active Substance: DENOSUMAB

REACTIONS (3)
  - Sneezing [Unknown]
  - Incorrect dose administered by device [Unknown]
  - Product delivery mechanism issue [Not Recovered/Not Resolved]

NARRATIVE: CASE EVENT DATE: 20220101
